FAERS Safety Report 6830191-4 (Version None)
Quarter: 2010Q3

REPORT INFORMATION
  Report Type: 
  Country: None (occurrence: None)
  Receive Date: 20100711
  Receipt Date: 20100616
  Transmission Date: 20110219
  Serious: No
  Sender: FDA-Public Use
  Company Number: US-ALLERGAN-1007888US

PATIENT
  Age: 72 Year
  Sex: Female

DRUGS (6)
  1. LATISSE [Suspect]
     Indication: GROWTH OF EYELASHES
     Dosage: UNK
  2. CELEBREX [Concomitant]
  3. PREDNISONE [Concomitant]
     Indication: SYSTEMIC LUPUS ERYTHEMATOSUS
  4. BONIVA [Concomitant]
  5. HYDROCHLOROTHIAZIDE [Concomitant]
  6. RESTASIS [Concomitant]

REACTIONS (3)
  - ERYTHEMA OF EYELID [None]
  - EYELID OEDEMA [None]
  - EYELIDS PRURITUS [None]
